FAERS Safety Report 5525857-2 (Version None)
Quarter: 2007Q4

REPORT INFORMATION
  Report Type: 
  Country: None (occurrence: None)
  Receive Date: 20071126
  Receipt Date: 20071114
  Transmission Date: 20080405
  Serious: Yes (Death, Hospitalization)
  Sender: FDA-Public Use
  Company Number: GB-AVENTIS-200715401EU

PATIENT
  Age: 82 Year
  Sex: Female

DRUGS (12)
  1. FUROSEMIDE [Suspect]
     Indication: CARDIAC FAILURE
  2. FUROSEMIDE [Suspect]
     Dates: end: 20070731
  3. CEFUROXIME [Suspect]
     Indication: URINARY TRACT INFECTION
  4. ADCAL D3 [Concomitant]
     Dosage: DOSE: 1 DF
  5. BECLOMETHASONE DIPROPIONATE [Concomitant]
  6. CO-CODAMOL [Concomitant]
     Dosage: DOSE: 2 DF
  7. FLUOXETINE [Concomitant]
  8. GAVISCON                           /01405501/ [Concomitant]
  9. MOVICOL                            /01053601/ [Concomitant]
  10. ALBUTEROL [Concomitant]
     Dosage: DOSE: 2 DF
  11. SENNA [Concomitant]
     Route: 048
  12. TOLTERODINE TARTRATE [Concomitant]

REACTIONS (4)
  - CLOSTRIDIUM DIFFICILE COLITIS [None]
  - HYPOKALAEMIA [None]
  - METABOLIC ALKALOSIS [None]
  - URINARY TRACT INFECTION [None]
